FAERS Safety Report 8987885 (Version 1)
Quarter: 2012Q4

REPORT INFORMATION
  Report Type: 
  Country: JP (occurrence: JP)
  Receive Date: 20121227
  Receipt Date: 20121227
  Transmission Date: 20130627
  Serious: Yes (Life-Threatening)
  Sender: FDA-Public Use
  Company Number: JP-GLAXOSMITHKLINE-B0852502A

PATIENT
  Age: 32 None
  Sex: Female

DRUGS (41)
  1. LAMICTAL [Suspect]
     Indication: BIPOLAR DISORDER
     Dosage: 25MG Per day
     Route: 048
     Dates: start: 20120125, end: 20120206
  2. BENZALIN [Suspect]
     Indication: SLEEP DISORDER
     Dosage: 10MG Per day
     Route: 048
     Dates: start: 20120125, end: 20120207
  3. MYSLEE [Concomitant]
     Indication: SLEEP DISORDER
     Dosage: 10MG Per day
     Route: 048
     Dates: start: 20110907, end: 20111121
  4. MEILAX [Concomitant]
     Indication: ANXIETY
     Dosage: 1MG Per day
     Route: 048
     Dates: start: 20110907, end: 20111030
  5. MEILAX [Concomitant]
     Indication: ANXIETY
     Dosage: 1MG Per day
     Route: 048
     Dates: start: 20111102, end: 20111110
  6. MEILAX [Concomitant]
     Indication: ANXIETY
     Dosage: 2MG Per day
     Route: 048
     Dates: start: 20111111, end: 20111212
  7. JZOLOFT [Concomitant]
     Indication: DEPRESSION
     Dosage: 50MG Per day
     Route: 048
     Dates: start: 20110907, end: 20111003
  8. GASMOTIN [Concomitant]
     Indication: PROPHYLAXIS
     Dosage: 5MG Three times per day
     Route: 048
     Dates: start: 20110907, end: 20110920
  9. DEPAS [Concomitant]
     Indication: SLEEP DISORDER
     Route: 048
     Dates: start: 20110907, end: 20110920
  10. REMERON [Concomitant]
     Indication: DEPRESSION
     Dosage: 15MG Per day
     Route: 048
     Dates: start: 20110914, end: 20110920
  11. REMERON [Concomitant]
     Indication: DEPRESSION
     Dosage: 30MG Per day
     Route: 048
     Dates: start: 20110921, end: 20111121
  12. REMERON [Concomitant]
     Indication: DEPRESSION
     Dosage: 45MG Per day
     Route: 048
     Dates: start: 20111122, end: 20111212
  13. REMERON [Concomitant]
     Indication: DEPRESSION
     Dosage: 30MG Per day
     Route: 048
     Dates: start: 20111213, end: 20111225
  14. REMERON [Concomitant]
     Indication: DEPRESSION
     Dosage: 15MG Per day
     Route: 048
     Dates: start: 20111226, end: 20120110
  15. REMERON [Concomitant]
     Indication: DEPRESSION
     Dosage: 22.5MG Per day
     Route: 048
     Dates: start: 20120111, end: 20120124
  16. SEDIEL [Concomitant]
     Indication: ANXIETY
     Route: 048
     Dates: start: 20110914, end: 20111002
  17. SEDIEL [Concomitant]
     Indication: ANXIETY
     Dosage: 20MG Per day
     Route: 048
     Dates: start: 20111003, end: 20111030
  18. SEDIEL [Concomitant]
     Indication: ANXIETY
     Route: 048
     Dates: start: 20111031, end: 20111121
  19. CYMBALTA [Concomitant]
     Indication: DEPRESSION
     Dosage: 20MG Per day
     Route: 048
     Dates: start: 20111003, end: 20111016
  20. ABILIFY [Concomitant]
     Indication: IRRITABILITY
     Dosage: 3MG Per day
     Route: 048
     Dates: start: 20111017, end: 20111030
  21. ABILIFY [Concomitant]
     Indication: IRRITABILITY
     Dosage: 3MG Twice per day
     Route: 048
     Dates: start: 20111031, end: 20111128
  22. ABILIFY [Concomitant]
     Indication: IRRITABILITY
     Dosage: 4.5MG Twice per day
     Route: 048
     Dates: start: 20111129, end: 20111205
  23. ABILIFY [Concomitant]
     Indication: IRRITABILITY
     Dosage: 6MG Twice per day
     Route: 048
     Dates: start: 20111206, end: 20111225
  24. BROTIZOLAM [Concomitant]
     Indication: SLEEP DISORDER
     Dosage: .25MG Per day
     Route: 048
     Dates: start: 20111031, end: 20111101
  25. EVAMYL [Concomitant]
     Indication: SLEEP DISORDER
     Dosage: 2MG Per day
     Route: 048
     Dates: start: 20111122, end: 20111209
  26. EVAMYL [Concomitant]
     Indication: SLEEP DISORDER
     Dosage: 3MG Per day
     Route: 048
     Dates: start: 20111210, end: 20120110
  27. EVAMYL [Concomitant]
     Indication: SLEEP DISORDER
     Dosage: 3MG Per day
     Route: 048
     Dates: start: 20120208
  28. MAGLAX [Concomitant]
     Indication: CONSTIPATION
     Dosage: 1000MG Twice per day
     Route: 048
     Dates: start: 20111122, end: 20120208
  29. CHINESE MEDICINE [Concomitant]
     Indication: OBESITY
     Dosage: 2.5MG Three times per day
     Route: 048
     Dates: start: 20111122, end: 20120110
  30. CHINESE MEDICINE [Concomitant]
     Indication: OBESITY
     Dosage: 2.5MG Three times per day
     Route: 048
     Dates: start: 20120125
  31. WYPAX [Concomitant]
     Indication: ANXIETY
     Route: 048
     Dates: start: 20111206, end: 20111212
  32. LEVOTOMIN [Concomitant]
     Indication: ANXIETY
     Route: 048
     Dates: start: 20111213, end: 20111225
  33. LEVOTOMIN [Concomitant]
     Indication: ANXIETY
     Route: 048
     Dates: start: 20120111, end: 20120124
  34. LEVOTOMIN [Concomitant]
     Indication: ANXIETY
     Dosage: 5MG Twice per day
     Route: 048
     Dates: start: 20120125
  35. DIAZEPAM [Concomitant]
     Indication: ANXIETY
     Dosage: 5MG Per day
     Route: 030
     Dates: start: 20111213, end: 20111213
  36. TRIHEXYPHENIDYL [Concomitant]
     Indication: AKATHISIA
     Dosage: 2MG Three times per day
     Route: 048
     Dates: start: 20111220, end: 20111221
  37. RISPERIDONE [Concomitant]
     Indication: IRRITABILITY
     Dosage: .5MG Twice per day
     Route: 048
     Dates: start: 20111226, end: 20120110
  38. CONTOMIN [Concomitant]
     Indication: ANXIETY
     Route: 048
     Dates: start: 20111226, end: 20120110
  39. CALONAL [Concomitant]
     Indication: HEADACHE
     Route: 048
     Dates: start: 20111226, end: 20120110
  40. BIBITTOACE [Concomitant]
     Indication: SLEEP DISORDER
     Dosage: 2MG Per day
     Route: 048
     Dates: start: 20120111, end: 20120124
  41. BRUFEN [Concomitant]
     Indication: HEADACHE
     Route: 048
     Dates: start: 20120111, end: 20120124

REACTIONS (9)
  - Stevens-Johnson syndrome [Recovered/Resolved]
  - Drug eruption [Unknown]
  - Rash [Unknown]
  - Pyrexia [Unknown]
  - Erythema [Unknown]
  - Lip erosion [Unknown]
  - Conjunctivitis [Unknown]
  - White blood cell count increased [Unknown]
  - C-reactive protein increased [Unknown]
